FAERS Safety Report 4624333-9 (Version None)
Quarter: 2005Q1

REPORT INFORMATION
  Report Type: 
  Country: None (occurrence: None)
  Receive Date: 20050330
  Receipt Date: 20050330
  Transmission Date: 20050727
  Serious: Yes (Hospitalization)
  Sender: FDA-Public Use
  Company Number: None

PATIENT
  Age: 82 Year
  Sex: Female
  Weight: 36 kg

DRUGS (2)
  1. IRESSA [Suspect]
     Indication: LUNG NEOPLASM MALIGNANT
     Dosage: 125 MG BID
     Dates: start: 20050202
  2. FASLODEX [Suspect]
     Indication: LUNG NEOPLASM MALIGNANT
     Dosage: MONTHLY -250 MG
     Route: 030
     Dates: start: 20050202

REACTIONS (8)
  - DEHYDRATION [None]
  - DYSPNOEA [None]
  - HYPOXIA [None]
  - LETHARGY [None]
  - ORAL INTAKE REDUCED [None]
  - RECTAL HAEMORRHAGE [None]
  - SOMNOLENCE [None]
  - WHEEZING [None]
